FAERS Safety Report 4511312-5 (Version None)
Quarter: 2004Q4

REPORT INFORMATION
  Report Type: 
  Country: None (occurrence: None)
  Receive Date: 20041123
  Receipt Date: 20041123
  Transmission Date: 20050328
  Serious: Yes (Hospitalization)
  Sender: FDA-Public Use
  Company Number: None

PATIENT
  Age: 60 Year
  Sex: Male
  Weight: 62.7 kg

DRUGS (3)
  1. METRONIDAZOLE [Suspect]
     Indication: CLOSTRIDIAL INFECTION
     Dosage: 500 MG TID ORAL
     Route: 048
     Dates: start: 20040824, end: 20040903
  2. SERTRALINE HCL [Concomitant]
  3. ASPIRIN, BUFFERED [Concomitant]

REACTIONS (1)
  - THROMBOCYTOPENIA [None]
